FAERS Safety Report 9607437 (Version 1)
Quarter: 2013Q4

REPORT INFORMATION
  Report Type: Spontaneous
  Country: US (occurrence: None)
  Receive Date: 20131007
  Receipt Date: 20131007
  Transmission Date: 20140711
  Serious: Yes (Other)
  Sender: FDA-Public Use
  Company Number: None

PATIENT
  Age: 39 Year
  Sex: Female
  Weight: 86.18 kg

DRUGS (1)
  1. CLEARLAX [Suspect]
     Indication: CONSTIPATION
     Dates: start: 20131005, end: 20131005

REACTIONS (5)
  - Pyrexia [None]
  - Headache [None]
  - Rash [None]
  - Chest pain [None]
  - Chest discomfort [None]
